FAERS Safety Report 6399608-6 (Version None)
Quarter: 2009Q4

REPORT INFORMATION
  Report Type: 
  Country: None (occurrence: None)
  Receive Date: 20091014
  Receipt Date: 20091009
  Transmission Date: 20100525
  Serious: Yes (Life-Threatening, Hospitalization)
  Sender: FDA-Public Use
  Company Number: FR-WYE-G04473609

PATIENT
  Sex: Female
  Weight: 14 kg

DRUGS (1)
  1. ADVIL LIQUI-GELS [Suspect]
     Indication: VARICELLA
     Dosage: ONE SINGLE DOSE
     Route: 048
     Dates: start: 20090614, end: 20090614

REACTIONS (4)
  - CONDITION AGGRAVATED [None]
  - GENERAL PHYSICAL HEALTH DETERIORATION [None]
  - NECROTISING FASCIITIS [None]
  - VARICELLA [None]
